FAERS Safety Report 8851962 (Version 3)
Quarter: 2012Q4

REPORT INFORMATION
  Report Type: Report from Study
  Country: MX (occurrence: MX)
  Receive Date: 20121022
  Receipt Date: 20121226
  Transmission Date: 20130627
  Serious: Yes (Death, Hospitalization)
  Sender: FDA-Public Use
  Company Number: MX-BRISTOL-MYERS SQUIBB COMPANY-17037656

PATIENT
  Age: 71 Year
  Sex: Female
  Weight: 46.5 kg

DRUGS (5)
  1. ERBITUX [Suspect]
     Indication: HEAD AND NECK CANCER
     Dosage: 400mg/m2 loading dose  D1 of cycle:3Sep12
250mg/m2 D1,D8, and D15:11Sep-1Oct12(21D)
     Route: 042
     Dates: start: 20120903
  2. CISPLATIN [Suspect]
     Indication: HEAD AND NECK CANCER
     Dosage: 03Sep2012-24sep12(22Days)
last dose:24sep12
     Route: 042
     Dates: start: 20120903
  3. 5-FLUOROURACIL [Suspect]
     Indication: HEAD AND NECK CANCER
     Dosage: D1-4
3Sep12-24Sep2012(22D)
last dose:24Sep12
     Route: 042
     Dates: start: 20120903
  4. DIPHENIDOL [Concomitant]
     Indication: NAUSEA
     Dates: start: 20121007, end: 20121007
  5. ATENOLOL + CHLORTHALIDONE [Concomitant]
     Indication: HYPERTENSION
     Dates: start: 2007, end: 20121009

REACTIONS (3)
  - Acute respiratory failure [Fatal]
  - Pancytopenia [Not Recovered/Not Resolved]
  - Renal impairment [Not Recovered/Not Resolved]
